FAERS Safety Report 23114786 (Version 1)
Quarter: 2023Q4

REPORT INFORMATION
  Report Type: Spontaneous
  Country: US (occurrence: US)
  Receive Date: 20231027
  Receipt Date: 20231027
  Transmission Date: 20240109
  Serious: No
  Sender: FDA-Public Use
  Company Number: US-SANOFI-01813338

PATIENT
  Age: 67 Year
  Sex: Male

DRUGS (2)
  1. DUPIXENT [Suspect]
     Active Substance: DUPILUMAB
     Indication: Benign familial pemphigus
     Dosage: 600 MG, 1X
  2. NALTREXONE [Concomitant]
     Active Substance: NALTREXONE
     Indication: Benign familial pemphigus

REACTIONS (1)
  - Product use in unapproved indication [Unknown]
